FAERS Safety Report 25221249 (Version 1)
Quarter: 2025Q2

REPORT INFORMATION
  Report Type: Spontaneous
  Country: MX (occurrence: MX)
  Receive Date: 20250421
  Receipt Date: 20250421
  Transmission Date: 20250717
  Serious: Yes (Other)
  Sender: NOVARTIS
  Company Number: MX-002147023-NVSC2025MX064900

PATIENT
  Age: 30 Year
  Sex: Female

DRUGS (1)
  1. CYCLOSPORINE [Suspect]
     Active Substance: CYCLOSPORINE
     Indication: Product used for unknown indication
     Route: 065

REACTIONS (5)
  - Encephalopathy [Unknown]
  - Personality change [Unknown]
  - Lethargy [Unknown]
  - Speech disorder [Unknown]
  - Depression [Unknown]
